FAERS Safety Report 9827072 (Version 1)
Quarter: 2013Q4

REPORT INFORMATION
  Report Type: Spontaneous
  Country: US (occurrence: None)
  Receive Date: 20131112
  Receipt Date: 20131112
  Transmission Date: 20140711
  Serious: Yes (Other)
  Sender: FDA-Public Use
  Company Number: US-013040

PATIENT
  Age: 63 Year
  Sex: Female
  Weight: 70.31 kg

DRUGS (7)
  1. PICO-SALAX [Suspect]
     Indication: BOWEL PREPARATION
     Dates: start: 20130908, end: 20130908
  2. MELATONIN [Concomitant]
  3. LIALDA [Concomitant]
  4. CITRUCEL [Concomitant]
  5. DULCOLAX (BISACODYL) [Concomitant]
  6. BETAMETHASONE [Concomitant]
  7. VOLTAREN EMULGEL [Concomitant]

REACTIONS (2)
  - Drug ineffective [None]
  - Abdominal pain upper [None]
